FAERS Safety Report 25731950 (Version 1)
Quarter: 2025Q3

REPORT INFORMATION
  Report Type: Spontaneous
  Country: US (occurrence: None)
  Receive Date: 20250827
  Receipt Date: 20250827
  Transmission Date: 20251020
  Serious: Yes (Hospitalization)
  Sender: FDA-CTU
  Company Number: None

PATIENT
  Age: 80 Year
  Sex: Female

DRUGS (1)
  1. LENALIDOMIDE [Suspect]
     Active Substance: LENALIDOMIDE
     Indication: Plasma cell myeloma
     Dosage: FREQUENCY : DAILY;?
     Route: 048
     Dates: start: 20210803

REACTIONS (5)
  - Dysarthria [None]
  - Drooling [None]
  - Systemic inflammatory response syndrome [None]
  - Troponin increased [None]
  - Sepsis [None]

NARRATIVE: CASE EVENT DATE: 20250825
